FAERS Safety Report 23158762 (Version 2)
Quarter: 2023Q4

REPORT INFORMATION
  Report Type: Spontaneous
  Country: LV (occurrence: LV)
  Receive Date: 20231108
  Receipt Date: 20231122
  Transmission Date: 20240110
  Serious: Yes (Death, Hospitalization, Other)
  Sender: FDA-Public Use
  Company Number: LV-009507513-2311LVA001062

PATIENT
  Age: 60 Year
  Sex: Female

DRUGS (3)
  1. PEMBROLIZUMAB [Suspect]
     Active Substance: PEMBROLIZUMAB
     Indication: Triple negative breast cancer
     Dosage: COMBINATION WITH CYCLOPHOSPHAMIDE
     Dates: start: 20230703, end: 20230814
  2. PEMBROLIZUMAB [Suspect]
     Active Substance: PEMBROLIZUMAB
     Dosage: 4 CYCLES
     Dates: start: 2023, end: 2023
  3. CAPECITABINE [Suspect]
     Active Substance: CAPECITABINE
     Indication: Triple negative breast cancer
     Dosage: UNK
     Dates: start: 2023, end: 20230922

REACTIONS (9)
  - Death [Fatal]
  - Myocardial infarction [Unknown]
  - Brain oedema [Unknown]
  - Seizure [Unknown]
  - Thrombosis [Unknown]
  - Spinal artery thrombosis [Unknown]
  - Ischaemia [Unknown]
  - Bone marrow haemorrhage [Unknown]
  - Oedema [Unknown]

NARRATIVE: CASE EVENT DATE: 20230925
